FAERS Safety Report 8811616 (Version 1)
Quarter: 2012Q4

REPORT INFORMATION
  Report Type: 
  Country: US (occurrence: None)
  Receive Date: 20120925
  Receipt Date: 20120925
  Transmission Date: 20130627
  Serious: Yes (Hospitalization)
  Sender: FDA-Public Use
  Company Number: None

PATIENT
  Sex: Male
  Weight: 57.1 kg

DRUGS (2)
  1. CARBOPLATIN [Suspect]
     Dates: end: 20120905
  2. DOCETAXEL (TAXOTERE) [Suspect]
     Dates: end: 20120905

REACTIONS (3)
  - Duodenal stenosis [None]
  - Duodenal ulcer [None]
  - Obstruction gastric [None]
